FAERS Safety Report 15268525 (Version 1)
Quarter: 2018Q3

REPORT INFORMATION
  Report Type: Spontaneous
  Country: US (occurrence: US)
  Receive Date: 20180725
  Receipt Date: 20180725
  Transmission Date: 20181010
  Serious: Yes (Hospitalization)
  Sender: FDA-Public Use
  Company Number: None

PATIENT
  Age: 44 Year
  Sex: Female
  Weight: 61.2 kg

DRUGS (3)
  1. CISPLATIN. [Concomitant]
     Active Substance: CISPLATIN
     Dates: end: 20180424
  2. CARBOPLATIN. [Suspect]
     Active Substance: CARBOPLATIN
     Dates: end: 20180703
  3. TAXOL [Concomitant]
     Active Substance: PACLITAXEL
     Dates: end: 20180703

REACTIONS (2)
  - Radical hysterectomy [None]
  - Vaginal cuff dehiscence [None]

NARRATIVE: CASE EVENT DATE: 20180710
